FAERS Safety Report 21871218 (Version 2)
Quarter: 2023Q1

REPORT INFORMATION
  Report Type: Spontaneous
  Country: CH (occurrence: CH)
  Receive Date: 20230117
  Receipt Date: 20230228
  Transmission Date: 20230417
  Serious: Yes (Other)
  Sender: FDA-Public Use
  Company Number: CH-NOVOPROD-1010199

PATIENT
  Age: 49 Year
  Sex: Male
  Weight: 173 kg

DRUGS (2)
  1. NOVORAPID [Suspect]
     Active Substance: INSULIN ASPART
     Dosage: UNK (NEW CARTRIDGE)
     Route: 058
  2. NOVORAPID [Suspect]
     Active Substance: INSULIN ASPART
     Indication: Type 1 diabetes mellitus
     Dosage: 28.7 IU, QD
     Route: 058

REACTIONS (5)
  - Diabetic ketoacidosis [Recovered/Resolved]
  - Therapeutic product effect decreased [Unknown]
  - Product leakage [Unknown]
  - Product leakage [Unknown]
  - Product physical issue [Unknown]

NARRATIVE: CASE EVENT DATE: 20230102
